FAERS Safety Report 21592388 (Version 1)
Quarter: 2022Q4

REPORT INFORMATION
  Report Type: Report from Study
  Country: US (occurrence: US)
  Receive Date: 20221114
  Receipt Date: 20221114
  Transmission Date: 20230112
  Serious: No
  Sender: FDA-Public Use
  Company Number: US-KADMON-US-KAD-22-00821

PATIENT
  Sex: Female

DRUGS (1)
  1. BELUMOSUDIL [Suspect]
     Active Substance: BELUMOSUDIL
     Indication: Product used for unknown indication
     Dosage: 200 MILLIGRAM, UNK
     Route: 065
     Dates: start: 20220823

REACTIONS (5)
  - Blood glucose increased [Unknown]
  - Blood cholesterol increased [Unknown]
  - Skin disorder [Unknown]
  - Ulcer [Unknown]
  - Product dose omission issue [Unknown]
